FAERS Safety Report 25776151 (Version 1)
Quarter: 2025Q3

REPORT INFORMATION
  Report Type: Spontaneous
  Country: US (occurrence: US)
  Receive Date: 20250909
  Receipt Date: 20250909
  Transmission Date: 20251021
  Serious: No
  Sender: ENDO
  Company Number: US-ENDO USA, INC.-2025-001695

PATIENT
  Sex: Female

DRUGS (4)
  1. CLONAZEPAM [Suspect]
     Active Substance: CLONAZEPAM
     Indication: Lyme disease
     Route: 065
     Dates: start: 2025
  2. CLONAZEPAM [Suspect]
     Active Substance: CLONAZEPAM
     Route: 065
     Dates: start: 2025
  3. CLONAZEPAM [Suspect]
     Active Substance: CLONAZEPAM
     Route: 065
     Dates: start: 2025
  4. CLONAZEPAM [Suspect]
     Active Substance: CLONAZEPAM
     Route: 065
     Dates: start: 2012

REACTIONS (3)
  - Drug ineffective [Not Recovered/Not Resolved]
  - Ill-defined disorder [Not Recovered/Not Resolved]
  - Off label use [Not Recovered/Not Resolved]

NARRATIVE: CASE EVENT DATE: 20120101
